FAERS Safety Report 5335302-8 (Version None)
Quarter: 2007Q2

REPORT INFORMATION
  Report Type: 
  Country: None (occurrence: None)
  Receive Date: 20070525
  Receipt Date: 20070514
  Transmission Date: 20071010
  Serious: Yes (Death, Life-Threatening, Hospitalization)
  Sender: FDA-Public Use
  Company Number: HK-PFIZER INC-2007036709

PATIENT
  Sex: Male
  Weight: 48 kg

DRUGS (7)
  1. SU-011,248 [Suspect]
     Indication: GASTRIC CANCER
     Route: 048
     Dates: start: 20070213, end: 20070423
  2. FAMOTIDINE [Concomitant]
     Route: 048
  3. FRUSEMIDE [Concomitant]
     Route: 048
  4. PROMETHAZINE [Concomitant]
     Route: 048
  5. SODIUM CHLORIDE [Concomitant]
     Route: 048
  6. SPIRONOLACTONE [Concomitant]
     Route: 048
  7. NAPROXEN [Concomitant]
     Route: 048

REACTIONS (6)
  - ANAEMIA [None]
  - DISEASE PROGRESSION [None]
  - FATIGUE [None]
  - GASTRIC CANCER [None]
  - HYPOALBUMINAEMIA [None]
  - RESPIRATORY FAILURE [None]
